FAERS Safety Report 12162279 (Version 3)
Quarter: 2016Q2

REPORT INFORMATION
  Report Type: Spontaneous
  Country: JP (occurrence: JP)
  Receive Date: 20160309
  Receipt Date: 20160405
  Transmission Date: 20160815
  Serious: Yes (Other)
  Sender: FDA-Public Use
  Company Number: JP-MUNDIPHARMA DS AND PHARMACOVIGILANCE-GBR-2016-0034551

PATIENT
  Age: 76 Year
  Sex: Male

DRUGS (12)
  1. ALLOPURINOL. [Concomitant]
     Active Substance: ALLOPURINOL
     Indication: HYPERURICAEMIA
     Dosage: 50 MG, DAILY
     Route: 048
     Dates: start: 20151221
  2. OXYCONTIN [Suspect]
     Active Substance: OXYCODONE HYDROCHLORIDE
     Dosage: 40 MG, DAILY (20 MG TWICE DAILY)
     Route: 048
     Dates: start: 20160213, end: 20160214
  3. LOXOPROFEN [Concomitant]
     Active Substance: LOXOPROFEN
     Indication: PHARYNGITIS
  4. CALONAL [Concomitant]
     Active Substance: ACETAMINOPHEN
     Indication: STOMATITIS
     Dosage: 1800 MG, DAILY
     Route: 048
     Dates: start: 20160205
  5. OXYCONTIN [Suspect]
     Active Substance: OXYCODONE HYDROCHLORIDE
     Dosage: 20 MG, DAILY
     Route: 048
     Dates: start: 20160209, end: 20160213
  6. OXYCONTIN [Suspect]
     Active Substance: OXYCODONE HYDROCHLORIDE
     Dosage: 10 MG, DAILY
     Route: 048
     Dates: start: 20160203, end: 20160209
  7. LYRICA [Concomitant]
     Active Substance: PREGABALIN
     Dosage: 150 MG, DAILY
     Route: 048
     Dates: start: 20151221
  8. LOXOPROFEN [Concomitant]
     Active Substance: LOXOPROFEN
     Indication: STOMATITIS
     Dosage: 180 MG, DAILY
     Route: 048
     Dates: start: 20160201
  9. OXYCONTIN [Suspect]
     Active Substance: OXYCODONE HYDROCHLORIDE
     Indication: CANCER PAIN
     Dosage: 20 MG, DAILY
     Route: 048
     Dates: start: 20160214, end: 20160216
  10. OXYCODONE HCL IR POWDER 0.5% [Suspect]
     Active Substance: OXYCODONE HYDROCHLORIDE
     Indication: CANCER PAIN
     Dosage: 2.5 MG, DAILY
     Route: 048
     Dates: start: 20160213, end: 20160222
  11. FAMOTIDINE. [Concomitant]
     Active Substance: FAMOTIDINE
     Indication: GASTRITIS
     Dosage: 20 MG, DAILY
     Route: 048
     Dates: start: 20151221
  12. AMLODIPINE [Concomitant]
     Active Substance: AMLODIPINE BESYLATE
     Indication: HYPERTENSION
     Dosage: 2.5 MG, DAILY
     Route: 048
     Dates: start: 20151221

REACTIONS (1)
  - Delirium [Recovering/Resolving]

NARRATIVE: CASE EVENT DATE: 20160214
